FAERS Safety Report 5896703-2 (Version None)
Quarter: 2008Q3

REPORT INFORMATION
  Report Type: 
  Country: None (occurrence: None)
  Receive Date: 20080924
  Receipt Date: 20080908
  Transmission Date: 20090109
  Serious: Yes (Other)
  Sender: FDA-Public Use
  Company Number: MX-PFIZER INC-2008079877

PATIENT
  Sex: Female
  Weight: 56 kg

DRUGS (1)
  1. DILANTIN [Suspect]
     Indication: CONVULSION
     Route: 048
     Dates: start: 19820101

REACTIONS (5)
  - ASTHENIA [None]
  - FEELING ABNORMAL [None]
  - MAJOR DEPRESSION [None]
  - PHOTOPHOBIA [None]
  - SOMNOLENCE [None]
